FAERS Safety Report 18152500 (Version 3)
Quarter: 2020Q4

REPORT INFORMATION
  Report Type: Spontaneous
  Country: JP (occurrence: JP)
  Receive Date: 20200814
  Receipt Date: 20201228
  Transmission Date: 20210113
  Serious: Yes (Death, Life-Threatening, Hospitalization, Other)
  Sender: FDA-Public Use
  Company Number: JP-ASTRAZENECA-2020SF02245

PATIENT
  Age: 74 Year
  Sex: Male
  Weight: 66 kg

DRUGS (10)
  1. CALONAL [Concomitant]
     Active Substance: ACETAMINOPHEN
     Route: 048
     Dates: start: 20200420, end: 20200719
  2. EURAX [Concomitant]
     Active Substance: CROTAMITON
     Dosage: ADEQUATE DOSE
     Route: 061
     Dates: start: 20200618, end: 20200719
  3. ZOLPIDEM TARTRATE. [Concomitant]
     Active Substance: ZOLPIDEM TARTRATE
     Route: 048
     Dates: start: 20200414, end: 20200719
  4. SENNOSIDE [Concomitant]
     Active Substance: SENNOSIDES
     Indication: CONSTIPATION
     Dosage: AS REQUIRED
     Route: 048
     Dates: start: 20200618, end: 20200719
  5. IMFINZI [Suspect]
     Active Substance: DURVALUMAB
     Indication: NON-SMALL CELL LUNG CANCER
     Route: 041
     Dates: start: 20200604, end: 20200702
  6. HEPARIN [Suspect]
     Active Substance: HEPARIN SODIUM
     Route: 041
     Dates: start: 20200716, end: 20200716
  7. LIXIANA OD [Suspect]
     Active Substance: EDOXABAN TOSYLATE
     Route: 048
     Dates: start: 20200413, end: 20200717
  8. HEPARIN [Suspect]
     Active Substance: HEPARIN SODIUM
     Route: 041
     Dates: start: 20200717, end: 20200718
  9. DILTIAZEM HYDROCHLORIDE. [Concomitant]
     Active Substance: DILTIAZEM HYDROCHLORIDE
     Route: 048
     Dates: start: 20200413, end: 20200719
  10. MAGNESIUM OXIDE. [Concomitant]
     Active Substance: MAGNESIUM OXIDE
     Route: 048
     Dates: start: 20200422, end: 20200719

REACTIONS (13)
  - Pulmonary congestion [Fatal]
  - Interstitial lung disease [Fatal]
  - Aortic arteriosclerosis [Unknown]
  - Feeding disorder [Unknown]
  - Disseminated intravascular coagulation [Fatal]
  - Gastritis erosive [Unknown]
  - Headache [Unknown]
  - Respiratory failure [Unknown]
  - Cardiac failure congestive [Fatal]
  - Dehydration [Unknown]
  - Haemoptysis [Fatal]
  - Metastases to lymph nodes [Unknown]
  - Chronic gastritis [Unknown]

NARRATIVE: CASE EVENT DATE: 20200711
